FAERS Safety Report 11945362 (Version 1)
Quarter: 2016Q1

REPORT INFORMATION
  Report Type: Spontaneous
  Country: IT (occurrence: IT)
  Receive Date: 20160125
  Receipt Date: 20160125
  Transmission Date: 20160526
  Serious: Yes (Hospitalization, Other)
  Sender: FDA-Public Use
  Company Number: IT-ELI_LILLY_AND_COMPANY-IT201601008406

PATIENT
  Age: 37 Year
  Sex: Male

DRUGS (4)
  1. BIPERIDEN HYDROCHLORIDE [Concomitant]
     Active Substance: BIPERIDEN HYDROCHLORIDE
     Indication: AGGRESSION
     Dosage: 4 MG, UNKNOWN
     Route: 065
  2. OLANZAPINE. [Suspect]
     Active Substance: OLANZAPINE
     Indication: INTELLECTUAL DISABILITY
     Dosage: UNK, UNKNOWN
     Route: 065
     Dates: start: 2002
  3. OLANZAPINE. [Suspect]
     Active Substance: OLANZAPINE
     Dosage: 15 MG, QD
     Route: 065
     Dates: start: 2012
  4. CHLORPROMAZINE. [Concomitant]
     Active Substance: CHLORPROMAZINE
     Indication: AGGRESSION
     Dosage: 25 MG, QD
     Route: 065

REACTIONS (7)
  - Steatohepatitis [Unknown]
  - Off label use [Unknown]
  - Blood cholesterol increased [Unknown]
  - Jaundice cholestatic [Unknown]
  - Hepatic steatosis [Unknown]
  - Aggression [Unknown]
  - Gallbladder disorder [Unknown]

NARRATIVE: CASE EVENT DATE: 2012
